FAERS Safety Report 24316084 (Version 1)
Quarter: 2024Q3

REPORT INFORMATION
  Report Type: Spontaneous
  Country: AU (occurrence: AU)
  Receive Date: 20240913
  Receipt Date: 20240913
  Transmission Date: 20241016
  Serious: Yes (Hospitalization, Other)
  Sender: RANBAXY
  Company Number: AU-SUN PHARMACEUTICAL INDUSTRIES LTD-2024R1-466337

PATIENT
  Age: 25 Year
  Sex: Female

DRUGS (10)
  1. LURASIDONE [Suspect]
     Active Substance: LURASIDONE
     Indication: Product used for unknown indication
     Dosage: UNK
     Route: 065
  2. OLANZAPINE [Suspect]
     Active Substance: OLANZAPINE
     Indication: Bipolar II disorder
     Dosage: UNK
     Route: 065
  3. BUPROPION [Suspect]
     Active Substance: BUPROPION
     Indication: Product used for unknown indication
     Dosage: UNK
     Route: 065
  4. LITHIUM [Suspect]
     Active Substance: LITHIUM
     Indication: Product used for unknown indication
     Dosage: UNK
     Route: 065
  5. VALPROATE SODIUM [Suspect]
     Active Substance: VALPROATE SODIUM
     Indication: Product used for unknown indication
     Dosage: UNK
     Route: 065
  6. LAMICTAL [Suspect]
     Active Substance: LAMOTRIGINE
     Indication: Product used for unknown indication
     Dosage: UNK
     Route: 065
  7. CARIPRAZINE [Suspect]
     Active Substance: CARIPRAZINE
     Indication: Bipolar II disorder
     Dosage: UNK
     Route: 065
  8. SEROQUEL [Suspect]
     Active Substance: QUETIAPINE FUMARATE
     Indication: Product used for unknown indication
     Dosage: UNK
     Route: 065
  9. SPRAVATO [Suspect]
     Active Substance: ESKETAMINE
     Indication: Bipolar II disorder
     Dosage: UNK
     Route: 065
  10. SEROTONIN [Concomitant]
     Active Substance: SEROTONIN
     Indication: Product used for unknown indication
     Dosage: UNK
     Route: 065

REACTIONS (3)
  - Drug resistance [Unknown]
  - Off label use [Unknown]
  - Suicidal ideation [Unknown]
